FAERS Safety Report 17702830 (Version 1)
Quarter: 2020Q2

REPORT INFORMATION
  Report Type: Spontaneous
  Country: US (occurrence: US)
  Receive Date: 20200423
  Receipt Date: 20200423
  Transmission Date: 20200714
  Serious: No
  Sender: FDA-Public Use
  Company Number: US-JAZZ-2020-US-002786

PATIENT
  Sex: Female

DRUGS (1)
  1. XYREM [Suspect]
     Active Substance: SODIUM OXYBATE
     Indication: EXPOSURE VIA BODY FLUID
     Dosage: UNKNOWN DOSE
     Route: 015

REACTIONS (2)
  - Exposure via body fluid [Unknown]
  - Exposure during pregnancy [Unknown]
